FAERS Safety Report 8263520-8 (Version None)
Quarter: 2012Q2

REPORT INFORMATION
  Report Type: 
  Country: None (occurrence: None)
  Receive Date: 20120405
  Receipt Date: 20120328
  Transmission Date: 20120825
  Serious: Yes (Hospitalization)
  Sender: FDA-Public Use
  Company Number: US-BAYER-2012-025540

PATIENT
  Age: 54 Year
  Sex: Female
  Weight: 57 kg

DRUGS (2)
  1. ALKA-SELTZER PLUS COLD AND COUGH (DAY) [Suspect]
     Dosage: WAS UNSURE OF HOW OFTEN SHE WAS TAKING THE PRODUCT
     Route: 048
     Dates: start: 20111129
  2. WELLBUTRIN [Interacting]

REACTIONS (5)
  - UNEVALUABLE EVENT [None]
  - HYPERSOMNIA [None]
  - MENTAL DISORDER [None]
  - NASOPHARYNGITIS [None]
  - FATIGUE [None]
